FAERS Safety Report 7763596-8 (Version None)
Quarter: 2011Q3

REPORT INFORMATION
  Report Type: 
  Country: None (occurrence: None)
  Receive Date: 20110920
  Receipt Date: 20110215
  Transmission Date: 20111222
  Serious: No
  Sender: FDA-Public Use
  Company Number: US-BAYER-2011-017200

PATIENT
  Age: 41 Year
  Sex: Female

DRUGS (1)
  1. ULTRAVIST 150 [Suspect]
     Indication: NUCLEAR MAGNETIC RESONANCE IMAGING BRAIN
     Dosage: 100 ML, ONCE
     Route: 042
     Dates: start: 20110202, end: 20110202

REACTIONS (5)
  - THROAT TIGHTNESS [None]
  - URTICARIA [None]
  - DYSPNOEA [None]
  - NAUSEA [None]
  - PRURITUS GENERALISED [None]
